FAERS Safety Report 4978294-3 (Version None)
Quarter: 2006Q2

REPORT INFORMATION
  Report Type: 
  Country: None (occurrence: None)
  Receive Date: 20060417
  Receipt Date: 20060405
  Transmission Date: 20061013
  Serious: Yes (Life-Threatening, Hospitalization)
  Sender: FDA-Public Use
  Company Number: 223320

PATIENT
  Age: 63 Year
  Sex: Male
  Weight: 118.8 kg

DRUGS (12)
  1. RAPTIVA [Suspect]
     Indication: PSORIASIS
     Dosage: 1.2 ML, 1/WEEK, SUBCUTANEOUS
     Route: 058
     Dates: start: 20040526
  2. MONOPRIL [Concomitant]
  3. GLUCOTROL [Concomitant]
  4. ACTOS [Concomitant]
  5. ZETIA [Concomitant]
  6. LORD PILLS (GENERIC COMPONENT(S) [Concomitant]
  7. COMBIVENT (ALBUTEROL, ALBUTEROL SULFATE, IPRATROPIUM BROMIDE) [Concomitant]
  8. PAXIL [Concomitant]
  9. K-DUR 10 [Concomitant]
  10. FUROSEMIDE [Concomitant]
  11. NORVASC [Concomitant]
  12. ADVAIR DISKUS 100/50 [Concomitant]

REACTIONS (5)
  - AORTIC EMBOLUS [None]
  - ATELECTASIS [None]
  - DIASTOLIC DYSFUNCTION [None]
  - EMPHYSEMA [None]
  - PULMONARY EMBOLISM [None]
